FAERS Safety Report 24989190 (Version 2)
Quarter: 2025Q2

REPORT INFORMATION
  Report Type: Spontaneous
  Country: DE (occurrence: DE)
  Receive Date: 20250220
  Receipt Date: 20250507
  Transmission Date: 20250716
  Serious: Yes (Hospitalization, Other)
  Sender: ROCHE
  Company Number: DE-ROCHE-10000204525

PATIENT
  Age: 69 Year
  Sex: Male
  Weight: 91 kg

DRUGS (7)
  1. TECENTRIQ [Suspect]
     Active Substance: ATEZOLIZUMAB
     Indication: Small cell lung cancer extensive stage
     Dosage: LAST DOSE: 30-05-2024
     Route: 042
     Dates: start: 20201201, end: 20201203
  2. TECENTRIQ [Suspect]
     Active Substance: ATEZOLIZUMAB
     Route: 042
     Dates: start: 20210223
  3. TECENTRIQ [Suspect]
     Active Substance: ATEZOLIZUMAB
     Route: 042
  4. CARBOPLATIN [Suspect]
     Active Substance: CARBOPLATIN
     Indication: Small cell lung cancer extensive stage
     Route: 065
     Dates: start: 20201201, end: 20201203
  5. ETOPOSIDE [Suspect]
     Active Substance: ETOPOSIDE
     Indication: Small cell lung cancer extensive stage
     Route: 065
     Dates: start: 20201201, end: 20201203
  6. DENOSUMAB [Concomitant]
     Active Substance: DENOSUMAB
     Dates: start: 20201204
  7. PIPERACILLIN AND TAZOBACTAM [Concomitant]
     Active Substance: PIPERACILLIN SODIUM\TAZOBACTAM SODIUM
     Route: 042

REACTIONS (11)
  - Metastases to bone [Unknown]
  - Bone lesion [Unknown]
  - Neoplasm [Unknown]
  - Pruritus [Recovering/Resolving]
  - Dermatitis [Recovering/Resolving]
  - Eosinophilia [Unknown]
  - Hypothyroidism [Unknown]
  - Ill-defined disorder [Unknown]
  - Cough [Unknown]
  - Thyroiditis [Recovered/Resolved]
  - Bronchial hyperreactivity [Recovering/Resolving]

NARRATIVE: CASE EVENT DATE: 20240530
